FAERS Safety Report 7458435-9 (Version None)
Quarter: 2011Q2

REPORT INFORMATION
  Report Type: 
  Country: None (occurrence: None)
  Receive Date: 20110504
  Receipt Date: 20110426
  Transmission Date: 20111010
  Serious: Yes (Other)
  Sender: FDA-Public Use
  Company Number: B0639343A

PATIENT
  Sex: Male
  Weight: 96 kg

DRUGS (7)
  1. PARIET [Concomitant]
     Dosage: 10MG PER DAY
     Route: 048
     Dates: start: 20090702
  2. ETHYL ICOSAPENTATE [Concomitant]
     Dosage: 1800MG PER DAY
     Route: 048
     Dates: start: 20100107
  3. FLOLAN [Suspect]
     Indication: PULMONARY ARTERIAL HYPERTENSION
     Route: 042
     Dates: start: 19960101
  4. LONGES [Concomitant]
     Indication: RIGHT VENTRICULAR FAILURE
     Dosage: 10MG PER DAY
     Route: 048
  5. LUPRAC [Concomitant]
     Indication: RIGHT VENTRICULAR FAILURE
     Dosage: 8MG PER DAY
     Route: 048
  6. ALOSITOL [Concomitant]
     Dosage: 100MG PER DAY
     Route: 048
  7. ALLELOCK [Concomitant]
     Dosage: 10MG PER DAY
     Route: 048

REACTIONS (2)
  - WHITE BLOOD CELL COUNT INCREASED [None]
  - HAEMATOCRIT INCREASED [None]
